FAERS Safety Report 5893706-9 (Version None)
Quarter: 2008Q3

REPORT INFORMATION
  Report Type: 
  Country: None (occurrence: None)
  Receive Date: 20080923
  Receipt Date: 20080913
  Transmission Date: 20090109
  Serious: Yes (Hospitalization, Other)
  Sender: FDA-Public Use
  Company Number: US-AMGEN-QUU307711

PATIENT
  Sex: Female

DRUGS (2)
  1. ENBREL [Suspect]
     Indication: PSORIASIS
     Route: 058
     Dates: start: 20080606
  2. ENBREL [Suspect]
     Indication: PSORIATIC ARTHROPATHY

REACTIONS (10)
  - ABDOMINAL PAIN [None]
  - ABDOMINAL WOUND DEHISCENCE [None]
  - HAEMORRHAGIC OVARIAN CYST [None]
  - INCISIONAL DRAINAGE [None]
  - OVARIAN GERM CELL TERATOMA BENIGN [None]
  - POSTOPERATIVE FEVER [None]
  - PROCEDURAL NAUSEA [None]
  - PROCEDURAL VOMITING [None]
  - URINARY TRACT INFECTION [None]
  - VAGINAL HAEMORRHAGE [None]
